FAERS Safety Report 9015356 (Version 1)
Quarter: 2013Q1

REPORT INFORMATION
  Report Type: Spontaneous
  Country: US (occurrence: None)
  Receive Date: 20130103
  Receipt Date: 20130103
  Transmission Date: 20140127
  Serious: Yes (Other)
  Sender: FDA-Public Use
  Company Number: 2012-22890

PATIENT
  Age: 44 Year
  Sex: Female

DRUGS (1)
  1. PARACETAMOL (UNKNOWN) (PARACETAMOL) UNK, UNKUNK [Suspect]
     Indication: PRODUCT USED FOR UNKNOWN INDICATION

REACTIONS (2)
  - Acute hepatic failure [None]
  - Toxicity to various agents [None]
